FAERS Safety Report 23758917 (Version 1)
Quarter: 2024Q2

REPORT INFORMATION
  Report Type: Spontaneous
  Country: US (occurrence: None)
  Receive Date: 20240418
  Receipt Date: 20240418
  Transmission Date: 20240715
  Serious: No
  Sender: FDA-Public Use
  Company Number: US-ROCHE-3342844

PATIENT
  Sex: Male

DRUGS (1)
  1. AVASTIN [Suspect]
     Active Substance: BEVACIZUMAB
     Indication: Macular oedema
     Dosage: 100MG/4ML, 1.25MG INTRAVITREALLY INTO THE RIGHT EYE EVERY 4 WEEKS
     Route: 031
     Dates: start: 202305

REACTIONS (2)
  - Off label use [Unknown]
  - No adverse event [Unknown]
